FAERS Safety Report 16137519 (Version 1)
Quarter: 2019Q2

REPORT INFORMATION
  Report Type: Report from Study
  Country: IT (occurrence: IT)
  Receive Date: 20190401
  Receipt Date: 20190401
  Transmission Date: 20190711
  Serious: Yes (Other)
  Sender: FDA-Public Use
  Company Number: IT-ACCORD-116568

PATIENT
  Age: 77 Year
  Sex: Female

DRUGS (4)
  1. PLAUNAZIDE [Concomitant]
     Active Substance: HYDROCHLOROTHIAZIDE\OLMESARTAN MEDOXOMIL
     Indication: HYPOTENSION
     Dosage: STRENGTH 40 MG/12,5 MG FILM-COATED TABLETS
     Route: 048
     Dates: start: 20120101
  2. SIMVASTATIN. [Concomitant]
     Active Substance: SIMVASTATIN
     Route: 048
     Dates: start: 20120101
  3. LANTANON [Concomitant]
     Dosage: STRENGTH 30 MG FILM-COATED TABLETS
     Route: 048
     Dates: start: 20120101
  4. QUETIAPINE. [Suspect]
     Active Substance: QUETIAPINE
     Indication: DEPRESSION
     Route: 048
     Dates: start: 20181001, end: 20181226

REACTIONS (5)
  - Hypokalaemia [Unknown]
  - Language disorder [Recovering/Resolving]
  - Drug intolerance [Unknown]
  - Somatic symptom disorder [Unknown]
  - Loss of consciousness [Recovering/Resolving]

NARRATIVE: CASE EVENT DATE: 20181226
